FAERS Safety Report 7135374-4 (Version None)
Quarter: 2010Q4

REPORT INFORMATION
  Report Type: 
  Country: None (occurrence: None)
  Receive Date: 20101203
  Receipt Date: 20101201
  Transmission Date: 20110411
  Serious: Yes (Life-Threatening, Other)
  Sender: FDA-Public Use
  Company Number: JP-PFIZER INC-2010135352

PATIENT
  Age: 52 Year
  Sex: Male

DRUGS (5)
  1. AMLODIPINE BESYLATE [Suspect]
     Dosage: UNK MG, UNK
  2. CARDENALIN [Suspect]
     Dosage: UNK
  3. HERBESSER [Suspect]
     Dosage: UNK
     Route: 048
  4. LISINOPRIL [Suspect]
     Dosage: UNK
  5. PRAVASTATIN SODIUM [Suspect]
     Dosage: UNK

REACTIONS (10)
  - DEPRESSED LEVEL OF CONSCIOUSNESS [None]
  - HYPOTENSION [None]
  - INTENTIONAL OVERDOSE [None]
  - INTESTINAL ISCHAEMIA [None]
  - INTESTINAL PERFORATION [None]
  - PERIPHERAL ISCHAEMIA [None]
  - PNEUMONIA ASPIRATION [None]
  - RENAL FAILURE ACUTE [None]
  - RHABDOMYOLYSIS [None]
  - SUICIDE ATTEMPT [None]
